FAERS Safety Report 23567088 (Version 5)
Quarter: 2024Q1

REPORT INFORMATION
  Report Type: Report from Study
  Country: DE (occurrence: DE)
  Receive Date: 20240226
  Receipt Date: 20240326
  Transmission Date: 20240409
  Serious: Yes (Hospitalization, Other)
  Sender: FDA-Public Use
  Company Number: DE-ABBVIE-5652901

PATIENT
  Age: 78 Year
  Sex: Female

DRUGS (4)
  1. CARBIDOPA\LEVODOPA [Suspect]
     Active Substance: CARBIDOPA\LEVODOPA
     Indication: Parkinson^s disease
     Dosage: MD 5.8 ML; CRD 3.9 ML/H; CRN 1.0 ML/H; ED 1.0 ML
     Route: 050
     Dates: start: 20190206
  2. CARBIDOPA\LEVODOPA [Suspect]
     Active Substance: CARBIDOPA\LEVODOPA
  3. MIRTAZAPINE [Concomitant]
     Active Substance: MIRTAZAPINE
     Indication: Product used for unknown indication
     Route: 065
  4. TORSEMIDE [Concomitant]
     Active Substance: TORSEMIDE
     Indication: Product used for unknown indication
     Route: 065

REACTIONS (18)
  - Gastrointestinal haemorrhage [Not Recovered/Not Resolved]
  - Melaena [Unknown]
  - Sinus tachycardia [Unknown]
  - Hepatic cyst [Unknown]
  - Infected fistula [Unknown]
  - Pleural effusion [Unknown]
  - Aortic valve stenosis [Unknown]
  - Stoma site hypergranulation [Unknown]
  - Rib fracture [Unknown]
  - Aortic arteriosclerosis [Unknown]
  - Hydronephrosis [Unknown]
  - Stoma site infection [Unknown]
  - Gastric stenosis [Unknown]
  - Pulmonary hypertension [Unknown]
  - Normochromic normocytic anaemia [Unknown]
  - Oesophageal stenosis [Unknown]
  - Stoma site inflammation [Unknown]
  - Stoma site erythema [Unknown]

NARRATIVE: CASE EVENT DATE: 20230901
